FAERS Safety Report 7756560-6 (Version None)
Quarter: 2011Q3

REPORT INFORMATION
  Report Type: 
  Country: None (occurrence: None)
  Receive Date: 20110916
  Receipt Date: 20110906
  Transmission Date: 20111222
  Serious: Yes (Hospitalization, Other)
  Sender: FDA-Public Use
  Company Number: CA-JNJFOC-20110903511

PATIENT
  Sex: Female
  Weight: 108 kg

DRUGS (10)
  1. REMICADE [Suspect]
     Dosage: 5TH INFUSION WAS 4 WEEKS LATE DUE TO HOSPITALIZATION
     Route: 042
     Dates: start: 20110907
  2. SYNTHROID [Concomitant]
     Indication: HYPOTHYROIDISM
     Route: 048
  3. ASCORBIC ACID [Concomitant]
  4. REMICADE [Suspect]
     Dosage: 4TH INFUSION
     Route: 042
     Dates: start: 20110622
  5. REMICADE [Suspect]
     Route: 042
     Dates: start: 20110504
  6. FERROUS SULFATE TAB [Concomitant]
  7. BENADRYL [Suspect]
     Indication: INFUSION RELATED REACTION
     Route: 042
     Dates: start: 20110907
  8. REMICADE [Suspect]
     Indication: COLITIS ULCERATIVE
     Route: 042
     Dates: start: 20110323
  9. WARFARIN SODIUM [Concomitant]
  10. REMICADE [Suspect]
     Route: 042
     Dates: start: 20110406

REACTIONS (8)
  - PNEUMONIA [None]
  - BLOOD PRESSURE INCREASED [None]
  - PULMONARY THROMBOSIS [None]
  - DYSPNOEA [None]
  - FLUSHING [None]
  - INFUSION RELATED REACTION [None]
  - HEART RATE INCREASED [None]
  - CHEST DISCOMFORT [None]
